FAERS Safety Report 19641909 (Version 13)
Quarter: 2022Q1

REPORT INFORMATION
  Report Type: Spontaneous
  Country: AU (occurrence: AU)
  Receive Date: 20210730
  Receipt Date: 20220128
  Transmission Date: 20220423
  Serious: Yes (Hospitalization, Other)
  Sender: FDA-Public Use
  Company Number: AU-PFIZER INC-2021888551

PATIENT
  Age: 73 Year
  Sex: Male
  Weight: 98 kg

DRUGS (20)
  1. APOMORPHINE HYDROCHLORIDE [Suspect]
     Active Substance: APOMORPHINE HYDROCHLORIDE
     Dosage: DAILY INFUSION
     Dates: start: 20210302
  2. APOMORPHINE HYDROCHLORIDE [Suspect]
     Active Substance: APOMORPHINE HYDROCHLORIDE
     Dosage: 3.5 MG PER HOUR, QD
     Dates: start: 20210302
  3. APOMORPHINE HYDROCHLORIDE [Suspect]
     Active Substance: APOMORPHINE HYDROCHLORIDE
     Dosage: 50.4 MG, DAILY (3.6 MG/H 6AM TO 8PM)
  4. APOMORPHINE HYDROCHLORIDE [Suspect]
     Active Substance: APOMORPHINE HYDROCHLORIDE
     Dosage: 3.6 MG PER HOUR, QD
  5. APOMORPHINE HYDROCHLORIDE [Suspect]
     Active Substance: APOMORPHINE HYDROCHLORIDE
     Dosage: 3.7 MG PER HOUR, QD;
  6. APOMORPHINE HYDROCHLORIDE [Suspect]
     Active Substance: APOMORPHINE HYDROCHLORIDE
     Dosage: INCREASED BY 0.1MG, DAILY INCREASES UNTIL DESIRED DOSE OF 4.4MG REACHED
  7. APOMORPHINE HYDROCHLORIDE [Suspect]
     Active Substance: APOMORPHINE HYDROCHLORIDE
     Dosage: INCREASED BY 0.2MG, FOLLOW UP WITH 2/7 INCREASES UNTIL DESIRED DOSE OF 4.4MG REACHED
  8. APOMORPHINE HYDROCHLORIDE [Suspect]
     Active Substance: APOMORPHINE HYDROCHLORIDE
     Dosage: 4.4MG PER HOUR
  9. APOMORPHINE HYDROCHLORIDE [Suspect]
     Active Substance: APOMORPHINE HYDROCHLORIDE
     Dosage: UNK, AS NEEDED (PRN WHEN PUMP NOT CONNECTED)
  10. DONEPEZIL HYDROCHLORIDE [Suspect]
     Active Substance: DONEPEZIL HYDROCHLORIDE
     Dosage: 10 MG, QD
  11. ATORVASTATIN CALCIUM [Suspect]
     Active Substance: ATORVASTATIN CALCIUM
     Dosage: 20 MG, 1X/DAY
  12. FLUVOXAMINE MALEATE [Suspect]
     Active Substance: FLUVOXAMINE MALEATE
     Dosage: 100 MG, 1 BEFORE BED (QD)
  13. RASAGILINE MESYLATE [Suspect]
     Active Substance: RASAGILINE MESYLATE
     Dosage: 1 MG, 1X/DAY
  14. ESOMEPRAZOLE [Suspect]
     Active Substance: ESOMEPRAZOLE
     Dosage: 20 MG, 1X/DAY
  15. FLUDROCORTISONE ACETATE [Suspect]
     Active Substance: FLUDROCORTISONE ACETATE
     Dosage: 100 UG, 2X/DAY
  16. BENSERAZIDE\LEVODOPA [Suspect]
     Active Substance: BENSERAZIDE\LEVODOPA
     Dosage: 1 DF, 4X/DAY
  17. BENSERAZIDE\LEVODOPA [Suspect]
     Active Substance: BENSERAZIDE\LEVODOPA
     Dosage: 2 DOSAGE FORM, QD (UNKNOWN DOSE 2 AT NIGHT)
  18. BENSERAZIDE HYDROCHLORIDE\LEVODOPA [Suspect]
     Active Substance: BENSERAZIDE HYDROCHLORIDE\LEVODOPA
     Dosage: 50/12.5 TDS
  19. BENSERAZIDE HYDROCHLORIDE\LEVODOPA [Suspect]
     Active Substance: BENSERAZIDE HYDROCHLORIDE\LEVODOPA
     Dosage: 100/25 NOCTE
  20. NEUPRO [Suspect]
     Active Substance: ROTIGOTINE
     Dosage: 2MG/HR

REACTIONS (10)
  - Hypertension [Unknown]
  - Orthostatic hypotension [Unknown]
  - Nausea [Unknown]
  - Oedema peripheral [Unknown]
  - Fluid retention [Unknown]
  - Muscle rigidity [Unknown]
  - Freezing phenomenon [Unknown]
  - Therapeutic product effect incomplete [Unknown]
  - Mobility decreased [Unknown]
  - General physical health deterioration [Unknown]

NARRATIVE: CASE EVENT DATE: 20210715
